FAERS Safety Report 8272921-3 (Version None)
Quarter: 2012Q2

REPORT INFORMATION
  Report Type: 
  Country: None (occurrence: None)
  Receive Date: 20120408
  Receipt Date: 20120408
  Transmission Date: 20120825
  Serious: No
  Sender: FDA-Public Use
  Company Number: None

PATIENT
  Sex: Male
  Weight: 132.9039 kg

DRUGS (2)
  1. SYMBICORT [Suspect]
     Indication: CHRONIC OBSTRUCTIVE PULMONARY DISEASE
     Dosage: 2 HITS MORNING/NIGHT
  2. SYMBICORT [Suspect]
     Indication: ASTHMA
     Dosage: 2 HITS MORNING/NIGHT

REACTIONS (4)
  - GLOSSODYNIA [None]
  - HYPOAESTHESIA [None]
  - PARAESTHESIA [None]
  - WHEEZING [None]
